FAERS Safety Report 8870129 (Version 1)
Quarter: 2012Q4

REPORT INFORMATION
  Report Type: Spontaneous
  Country: US (occurrence: None)
  Receive Date: 20121025
  Receipt Date: 20121025
  Transmission Date: 20130627
  Serious: Yes (Life-Threatening, Hospitalization)
  Sender: FDA-Public Use
  Company Number: None

PATIENT
  Age: 83 Year
  Sex: Female
  Weight: 90.3 kg

DRUGS (13)
  1. RIVAROXABAN [Suspect]
     Indication: ATRIAL FIBRILLATION
     Route: 048
     Dates: start: 20120319, end: 20120925
  2. ALBUTEROL\IPRATROPIUM [Concomitant]
  3. ALPRAZOLAM [Concomitant]
  4. ASPIRIN [Concomitant]
  5. CEFPODOXIME [Concomitant]
  6. DILTIAZEM [Concomitant]
  7. LASIX [Concomitant]
  8. LEVOTHYROXINE [Concomitant]
  9. LOVASTATIN [Concomitant]
  10. MELOXICAM [Concomitant]
  11. PREDNISONE [Concomitant]
  12. XARELTO [Concomitant]
  13. SOTALOL [Concomitant]

REACTIONS (3)
  - Upper gastrointestinal haemorrhage [None]
  - Haemorrhage intracranial [None]
  - Haemorrhagic anaemia [None]
